FAERS Safety Report 4998389-8 (Version None)
Quarter: 2006Q2

REPORT INFORMATION
  Report Type: 
  Country: None (occurrence: None)
  Receive Date: 20060508
  Receipt Date: 20060424
  Transmission Date: 20061013
  Serious: Yes (Other)
  Sender: FDA-Public Use
  Company Number: 2006054534

PATIENT
  Sex: Male
  Weight: 108.8633 kg

DRUGS (8)
  1. DETROL LA [Suspect]
     Indication: POLLAKIURIA
     Dosage: 4 MG (4 MG, 1 IN 1 D),
     Dates: start: 20050101, end: 20060420
  2. TAMSULOSIN HYDROCHLORIDE (TAMSULOSIN HYDROCHLORIDE) [Concomitant]
  3. INSULIN [Concomitant]
  4. TRICOR [Concomitant]
  5. PROVIGIL [Concomitant]
  6. ALL OTHER THERAPEUTIC PRODUCTS (ALL OTHER THERAPEUTIC PRODUCTS) [Concomitant]
  7. LITHIUM CARBONATE [Concomitant]
  8. ZETIA [Concomitant]

REACTIONS (11)
  - CONFUSIONAL STATE [None]
  - DISORIENTATION [None]
  - DRY EYE [None]
  - DRY MOUTH [None]
  - FLUID RETENTION [None]
  - HYPOTHYROIDISM [None]
  - MEMORY IMPAIRMENT [None]
  - PROSTATE EXAMINATION ABNORMAL [None]
  - RENAL IMPAIRMENT [None]
  - SOMNOLENCE [None]
  - TREMOR [None]
